FAERS Safety Report 14308832 (Version 1)
Quarter: 2017Q4

REPORT INFORMATION
  Report Type: Spontaneous
  Country: CH (occurrence: CH)
  Receive Date: 20171220
  Receipt Date: 20171220
  Transmission Date: 20180321
  Serious: Yes (Hospitalization)
  Sender: FDA-Public Use
  Company Number: CH-SHENZHEN TECHDOW PHARMACEUTICAL CO. LTD-CH-2017TEC0000068

PATIENT
  Age: 19 Year
  Sex: Female

DRUGS (3)
  1. HEPARIN SODIUM INJECTION USP, PRESERVATIVE FREE [Suspect]
     Active Substance: HEPARIN SODIUM
     Indication: ANTICOAGULANT THERAPY
     Dosage: UNK, IN THERAPEUTIC DOSAGES
  2. HEPARIN SODIUM INJECTION USP, PRESERVATIVE FREE [Suspect]
     Active Substance: HEPARIN SODIUM
     Dosage: UNK, HEPARIN WAS GIVEN CONTINUOUSLY
  3. AMIODARONE [Suspect]
     Active Substance: AMIODARONE
     Indication: HEART RATE ABNORMAL
     Dosage: UNK

REACTIONS (1)
  - Hypotension [Recovered/Resolved]
